FAERS Safety Report 15539281 (Version 3)
Quarter: 2019Q1

REPORT INFORMATION
  Report Type: Report from Study
  Country: US (occurrence: US)
  Receive Date: 20181022
  Receipt Date: 20190102
  Transmission Date: 20190417
  Serious: No
  Sender: FDA-Public Use
  Company Number: US-AMGEN INC.-USASP2018146185

PATIENT
  Age: 83 Year
  Sex: Male

DRUGS (2)
  1. BOTOX [Concomitant]
     Active Substance: ONABOTULINUMTOXINA
     Indication: MIGRAINE
     Dosage: 200 UNK, Q3WK
  2. AIMOVIG [Suspect]
     Active Substance: ERENUMAB-AOOE
     Indication: MIGRAINE
     Dosage: 70 MG, QMO
     Route: 065
     Dates: start: 201810

REACTIONS (9)
  - Constipation [Not Recovered/Not Resolved]
  - Rhinorrhoea [Unknown]
  - Secretion discharge [Unknown]
  - Ocular hyperaemia [Unknown]
  - Oropharyngeal pain [Unknown]
  - Migraine [Unknown]
  - Respiratory disorder [Unknown]
  - Lacrimation increased [Unknown]
  - Sleep disorder due to a general medical condition [Unknown]

NARRATIVE: CASE EVENT DATE: 2018
